FAERS Safety Report 5569942-8 (Version None)
Quarter: 2007Q4

REPORT INFORMATION
  Report Type: 
  Country: None (occurrence: None)
  Receive Date: 20071220
  Receipt Date: 20071218
  Transmission Date: 20080405
  Serious: Yes (Disabling)
  Sender: FDA-Public Use
  Company Number: GB-MERCK-0712GBR00076

PATIENT
  Age: 15 Year
  Sex: Female

DRUGS (3)
  1. SINGULAIR [Suspect]
     Indication: ASTHMA
     Route: 048
     Dates: start: 20050101
  2. SERETIDE [Concomitant]
     Route: 065
  3. VENTOLIN [Concomitant]
     Route: 065

REACTIONS (1)
  - EPILEPSY [None]
